FAERS Safety Report 25008984 (Version 2)
Quarter: 2025Q1

REPORT INFORMATION
  Report Type: Report from Study
  Country: ZA (occurrence: ZA)
  Receive Date: 20250225
  Receipt Date: 20250313
  Transmission Date: 20250409
  Serious: Yes (Other)
  Sender: ELI LILLY AND COMPANY
  Company Number: ZA-ELI_LILLY_AND_COMPANY-ZA202502010486

PATIENT
  Age: 47 Year
  Sex: Female
  Weight: 76 kg

DRUGS (2)
  1. IXEKIZUMAB [Suspect]
     Active Substance: IXEKIZUMAB
     Indication: Ankylosing spondylitis
     Route: 058
     Dates: start: 20250131
  2. IXEKIZUMAB [Suspect]
     Active Substance: IXEKIZUMAB
     Route: 058
     Dates: start: 20250225

REACTIONS (6)
  - Oropharyngeal pain [Unknown]
  - Injection site pain [Unknown]
  - Injection site erythema [Recovered/Resolved]
  - Injection site swelling [Recovered/Resolved]
  - Injection site urticaria [Unknown]
  - Urticaria [Unknown]

NARRATIVE: CASE EVENT DATE: 20250226
